FAERS Safety Report 8882281 (Version 1)
Quarter: 2012Q4

REPORT INFORMATION
  Report Type: 
  Country: US (occurrence: US)
  Receive Date: 20121105
  Receipt Date: 20121105
  Transmission Date: 20130627
  Serious: Yes (Hospitalization)
  Sender: FDA-Public Use
  Company Number: US-ELI_LILLY_AND_COMPANY-US201210009858

PATIENT
  Age: 50 Year
  Sex: Male

DRUGS (3)
  1. ADCIRCA [Suspect]
  2. VENTAVIS [Concomitant]
  3. AMBRISENTAN [Concomitant]
     Indication: COR PULMONALE CHRONIC
     Dosage: 5 mg, qd
     Dates: start: 20110406

REACTIONS (2)
  - Liver disorder [Unknown]
  - Anaemia [Unknown]
